FAERS Safety Report 6736650-7 (Version None)
Quarter: 2010Q2

REPORT INFORMATION
  Report Type: 
  Country: None (occurrence: None)
  Receive Date: 20100521
  Receipt Date: 20100510
  Transmission Date: 20101027
  Serious: Yes (Hospitalization, Other)
  Sender: FDA-Public Use
  Company Number: US-ELI_LILLY_AND_COMPANY-US201005002932

PATIENT
  Sex: Female

DRUGS (5)
  1. FORTEO [Suspect]
     Dosage: 20 U, DAILY (1/D)
  2. PLAVIX [Concomitant]
  3. ALEVE (CAPLET) [Concomitant]
  4. ALLEGRA [Concomitant]
     Dosage: 180 MG, DAILY (1/D)
  5. MULTI-VITAMIN [Concomitant]

REACTIONS (2)
  - GASTROINTESTINAL HAEMORRHAGE [None]
  - HOSPITALISATION [None]
